FAERS Safety Report 4840254-0 (Version None)
Quarter: 2005Q4

REPORT INFORMATION
  Report Type: 
  Country: None (occurrence: None)
  Receive Date: 20051125
  Receipt Date: 20051111
  Transmission Date: 20060501
  Serious: Yes (Hospitalization)
  Sender: FDA-Public Use
  Company Number: 219443

PATIENT
  Age: 52 Year
  Sex: Female

DRUGS (5)
  1. RITUXAN [Suspect]
     Indication: NON-HODGKIN'S LYMPHOMA
     Dates: start: 20051004
  2. CYCLOPHOSPHAMIDE [Concomitant]
  3. DOXORUBICIN HCL [Concomitant]
  4. VINCRISTINE [Concomitant]
  5. PREDNISONE [Concomitant]

REACTIONS (3)
  - HYPOACUSIS [None]
  - OCULAR VASCULAR DISORDER [None]
  - VASCULITIS [None]
